FAERS Safety Report 8538384-5 (Version None)
Quarter: 2012Q3

REPORT INFORMATION
  Report Type: 
  Country: None (occurrence: None)
  Receive Date: 20120726
  Receipt Date: 20120724
  Transmission Date: 20120928
  Serious: Yes (Other)
  Sender: FDA-Public Use
  Company Number: US-PFIZER INC-2012179652

PATIENT
  Sex: Female
  Weight: 86.168 kg

DRUGS (9)
  1. PRISTIQ [Suspect]
     Indication: DEPRESSION
     Dosage: 100 MG, DAILY
     Dates: start: 20120713, end: 20120701
  2. PHENERGAN HCL [Concomitant]
     Indication: NAUSEA
     Dosage: UNK
  3. VENLAFAXINE HCL [Suspect]
     Indication: DEPRESSION
     Dosage: 400 MG, DAILY
     Dates: end: 20120701
  4. ABILIFY [Suspect]
     Indication: DEPRESSION
     Dosage: 5 MG, DAILY
     Dates: end: 20120701
  5. LISINOPRIL [Concomitant]
     Indication: HYPERTENSION
     Dosage: 10 MG, UNK
  6. PRISTIQ [Suspect]
     Dosage: 100 MG, DAILY
     Dates: start: 20120722
  7. BUTALBITAL [Concomitant]
     Indication: MIGRAINE
     Dosage: UNK, AS NEEDED
  8. METFORMIN [Concomitant]
     Indication: DIABETES MELLITUS
     Dosage: 500 MG, DAILY
  9. LEVOTHYROXINE [Concomitant]
     Indication: HYPOTHYROIDISM
     Dosage: 150 UG, DAILY

REACTIONS (2)
  - DEPRESSION [None]
  - EXPIRED DRUG ADMINISTERED [None]
